FAERS Safety Report 16810649 (Version 1)
Quarter: 2019Q4

REPORT INFORMATION
  Report Type: Spontaneous
  Country: US (occurrence: US)
  Receive Date: 20190916
  Receipt Date: 20190916
  Transmission Date: 20200122
  Serious: Yes (Other)
  Sender: FDA-Public Use
  Company Number: None

PATIENT
  Sex: Female
  Weight: 100.35 kg

DRUGS (1)
  1. BUPRENORPHINE - NALOXONE FILMS [Suspect]
     Active Substance: BUPRENORPHINE\NALOXONE
     Route: 060
     Dates: start: 20180501, end: 20180601

REACTIONS (3)
  - Vomiting [None]
  - Mouth ulceration [None]
  - Nausea [None]

NARRATIVE: CASE EVENT DATE: 20180601
